FAERS Safety Report 25553360 (Version 1)
Quarter: 2025Q3

REPORT INFORMATION
  Report Type: Report from Study
  Country: CN (occurrence: CN)
  Receive Date: 20250715
  Receipt Date: 20250715
  Transmission Date: 20251020
  Serious: Yes (Life-Threatening, Other)
  Sender: ACCORD
  Company Number: CN-Accord-494116

PATIENT

DRUGS (5)
  1. CAPECITABINE [Suspect]
     Active Substance: CAPECITABINE
     Indication: Colorectal cancer metastatic
     Dosage: ADMINISTERED CONTINUOUSLY FOR 2 WEEKS FOLLOWED BY A 1-WEEK BREAK
  2. CATEQUENTINIB [Suspect]
     Active Substance: CATEQUENTINIB
     Indication: Colorectal cancer metastatic
     Dosage: WAS ADMINISTERED CONTINUOUSLY FOR 2 WEEKS FOLLOWED BY A 1-WEEK BREAK
  3. CAMRELIZUMAB [Suspect]
     Active Substance: CAMRELIZUMAB
     Indication: Colorectal cancer metastatic
  4. FRUQUINTINIB [Suspect]
     Active Substance: FRUQUINTINIB
     Indication: Colorectal cancer metastatic
     Dosage: ADMINISTERED CONTINUOUSLY FOR 2 WEEKS FOLLOWED BY A 1-WEEK BREAK
  5. TISLELIZUMAB [Suspect]
     Active Substance: TISLELIZUMAB
     Indication: Colorectal cancer metastatic

REACTIONS (3)
  - Proteinuria [Unknown]
  - Blood creatinine increased [Unknown]
  - Colitis ulcerative [Unknown]
